FAERS Safety Report 23185597 (Version 1)
Quarter: 2023Q4

REPORT INFORMATION
  Report Type: Other
  Country: HU (occurrence: HU)
  Receive Date: 20231115
  Receipt Date: 20231115
  Transmission Date: 20240110
  Serious: Yes (Other)
  Sender: FDA-Public Use
  Company Number: HU-CELLTRION HEALTHCARE HUNGARY KFT-2023HU021152

PATIENT
  Sex: Male

DRUGS (2)
  1. RITUXIMAB [Suspect]
     Active Substance: RITUXIMAB
     Indication: Anti-myelin-associated glycoprotein associated polyneuropathy
     Dosage: FIRST REGIMEN, DID NOT PRODUCE ANY MEANINGFUL RESULTS
     Route: 042
  2. RITUXIMAB [Suspect]
     Active Substance: RITUXIMAB
     Dosage: SECOND REGIMEN, AFTER 1 CYCLE OF PLASMAPHERESIS
     Route: 042

REACTIONS (2)
  - Ischaemic stroke [Unknown]
  - Off label use [Unknown]
